FAERS Safety Report 23178834 (Version 1)
Quarter: 2023Q4

REPORT INFORMATION
  Report Type: Other
  Country: TR (occurrence: TR)
  Receive Date: 20231113
  Receipt Date: 20231113
  Transmission Date: 20240109
  Serious: Yes (Death, Hospitalization, Other)
  Sender: FDA-Public Use
  Company Number: TR-Merck Healthcare KGaA-2023485890

PATIENT
  Age: 17 Year
  Sex: Female

DRUGS (5)
  1. METFORMIN HYDROCHLORIDE [Suspect]
     Active Substance: METFORMIN HYDROCHLORIDE
     Indication: Suicidal ideation
     Route: 048
  2. FLUVOXAMINE [Suspect]
     Active Substance: FLUVOXAMINE
     Indication: Suicidal ideation
  3. FLUOXETINE [Suspect]
     Active Substance: FLUOXETINE HYDROCHLORIDE
     Indication: Suicidal ideation
  4. RISPERIDONE [Suspect]
     Active Substance: RISPERIDONE
     Indication: Suicidal ideation
  5. SERTRALINE [Suspect]
     Active Substance: SERTRALINE HYDROCHLORIDE
     Indication: Suicidal ideation

REACTIONS (4)
  - Lactic acidosis [Fatal]
  - Brugada syndrome [Unknown]
  - Suicide attempt [Unknown]
  - Intentional overdose [Unknown]
